FAERS Safety Report 13877740 (Version 5)
Quarter: 2017Q4

REPORT INFORMATION
  Report Type: Spontaneous
  Country: US (occurrence: US)
  Receive Date: 20170817
  Receipt Date: 20171212
  Transmission Date: 20180320
  Serious: Yes (Congenital Anomaly, Other)
  Sender: FDA-Public Use
  Company Number: PHEH2017US026039

PATIENT
  Sex: Female

DRUGS (1)
  1. ZOFRAN ODT [Suspect]
     Active Substance: ONDANSETRON HYDROCHLORIDE
     Indication: FOETAL EXPOSURE DURING PREGNANCY
     Dosage: MOTHER^S DOSE: 08 MG, Q6H
     Route: 064

REACTIONS (22)
  - Asthma [Unknown]
  - Cough [Unknown]
  - Upper respiratory tract infection [Unknown]
  - Tonsillar hypertrophy [Unknown]
  - Adenoidal hypertrophy [Unknown]
  - Conductive deafness [Unknown]
  - Otitis media chronic [Unknown]
  - Injury [Unknown]
  - Micrognathia [Unknown]
  - Oropharyngeal pain [Unknown]
  - Gastrooesophageal reflux disease [Recovered/Resolved]
  - Ear pain [Unknown]
  - Cleft palate [Unknown]
  - Foetal exposure during pregnancy [Unknown]
  - Rhinitis allergic [Unknown]
  - Abdominal pain [Unknown]
  - Vomiting [Unknown]
  - Pharyngitis [Unknown]
  - Pyrexia [Unknown]
  - Headache [Unknown]
  - Retrognathia [Unknown]
  - Tooth avulsion [Unknown]
